FAERS Safety Report 11365908 (Version 3)
Quarter: 2015Q3

REPORT INFORMATION
  Report Type: Report from Study
  Country: MX (occurrence: MX)
  Receive Date: 20150811
  Receipt Date: 20150901
  Transmission Date: 20151125
  Serious: Yes (Death, Hospitalization, Disabling)
  Sender: FDA-Public Use
  Company Number: MX-AMGEN-MEXCT2015078287

PATIENT
  Age: 57 Year
  Sex: Female

DRUGS (25)
  1. FOLIC ACID. [Concomitant]
     Active Substance: FOLIC ACID
     Indication: PROPHYLAXIS
     Dosage: 5 MG, 1X/DAY
     Route: 048
     Dates: start: 201204, end: 20140226
  2. PARACETAMOL [Concomitant]
     Active Substance: ACETAMINOPHEN
     Indication: MIGRAINE
     Dosage: 500 MG, AS NEEDED
     Route: 048
     Dates: start: 201204, end: 20130605
  3. CLINDAMYCIN [Concomitant]
     Active Substance: CLINDAMYCIN\CLINDAMYCIN PHOSPHATE
     Indication: PHLEBITIS
     Dosage: 600 MG, SINGLE
     Route: 042
     Dates: start: 20150301, end: 20150301
  4. SULFASALAZINE. [Concomitant]
     Active Substance: SULFASALAZINE
     Dosage: 500 MG, 2X/DAY
     Route: 048
     Dates: start: 20121219, end: 20130605
  5. METHOTREXATE [Concomitant]
     Active Substance: METHOTREXATE
     Dosage: 10 MG, WEEKLY
     Route: 048
     Dates: start: 20130605, end: 20140226
  6. CELECOXIB. [Concomitant]
     Active Substance: CELECOXIB
     Indication: RHEUMATOID ARTHRITIS
     Dosage: 200 MG, AS NEEDED
     Route: 048
     Dates: start: 201204, end: 20130605
  7. KETOROLAC [Concomitant]
     Active Substance: KETOROLAC\KETOROLAC TROMETHAMINE
     Indication: PHLEBITIS
     Dosage: 30 MG, SINGLE
     Route: 042
     Dates: start: 20150301, end: 20150301
  8. BUMETANIDE. [Concomitant]
     Active Substance: BUMETANIDE
     Indication: PHLEBITIS
     Dosage: 1 MG, 2X/DAY
     Route: 048
     Dates: start: 20150303, end: 20150308
  9. LEVOFLOXACIN. [Concomitant]
     Active Substance: LEVOFLOXACIN
     Indication: CELLULITIS
  10. DEFLAZACORT [Concomitant]
     Active Substance: DEFLAZACORT
     Dosage: 3 MG, 1X/DAY
     Route: 048
     Dates: start: 20130313, end: 20150702
  11. CEPHALEXIN                         /00145501/ [Concomitant]
     Active Substance: CEPHALEXIN
     Indication: URINARY TRACT INFECTION
     Dosage: 500 MG, 2X/DAY
     Route: 048
     Dates: start: 20130518, end: 20130526
  12. MELOXICAM. [Concomitant]
     Active Substance: MELOXICAM
     Indication: PHLEBITIS
     Dosage: 15 MG, 1X/DAY
     Route: 030
     Dates: start: 20150301, end: 20150303
  13. ETANERCEPT [Suspect]
     Active Substance: ETANERCEPT
     Indication: RHEUMATOID ARTHRITIS
     Dosage: LAST DOSE PRIOR TO SAE 13MAY2015 AND DOSE WAS 50 MG.
     Route: 058
     Dates: start: 20120704, end: 20150513
  14. VENALOT                            /00843801/ [Concomitant]
     Indication: PHLEBITIS
     Dosage: 1 DF, 2X/DAY
     Route: 048
     Dates: start: 20150303, end: 20150308
  15. METHOTREXATE [Concomitant]
     Active Substance: METHOTREXATE
     Indication: RHEUMATOID ARTHRITIS
     Dosage: 10 MG, WEEKLY
     Route: 048
     Dates: start: 201204, end: 20120804
  16. SULFASALAZINE. [Concomitant]
     Active Substance: SULFASALAZINE
     Indication: RHEUMATOID ARTHRITIS
     Dosage: 1 G, 2X/DAY
     Route: 048
     Dates: start: 201204, end: 20121219
  17. LEVOFLOXACIN. [Concomitant]
     Active Substance: LEVOFLOXACIN
     Indication: CELLULITIS
     Dosage: 500 MG, 1X/DAY
     Route: 048
     Dates: start: 20150312, end: 20150319
  18. INDOMETHACIN                       /00003801/ [Concomitant]
     Active Substance: INDOMETHACIN
     Indication: RHEUMATOID ARTHRITIS
     Dosage: 50 MG, 1X/DAY
     Route: 048
     Dates: start: 20141022, end: 20150114
  19. PENTOXIFYLLINE. [Concomitant]
     Active Substance: PENTOXIFYLLINE
     Indication: PHLEBITIS
     Dosage: 400 MG, 2X/DAY
     Route: 048
     Dates: start: 20150228, end: 20150302
  20. METOPROLOL [Concomitant]
     Active Substance: METOPROLOL
     Dosage: UNK
  21. METHOTREXATE [Concomitant]
     Active Substance: METHOTREXATE
     Dosage: 5 MG, WEEKLY
     Route: 048
     Dates: start: 20120804, end: 20130604
  22. DEFLAZACORT [Concomitant]
     Active Substance: DEFLAZACORT
     Indication: RHEUMATOID ARTHRITIS
     Dosage: 3 MG, 1X/DAY
     Route: 048
     Dates: start: 201204, end: 20121219
  23. PARACETAMOL [Concomitant]
     Active Substance: ACETAMINOPHEN
     Indication: HEADACHE
     Dosage: 1 G, AS NEEDED
     Route: 048
     Dates: start: 20141020, end: 20141030
  24. PARACETAMOL [Concomitant]
     Active Substance: ACETAMINOPHEN
     Indication: RHEUMATOID ARTHRITIS
     Dosage: UNK
  25. SULODEXIDE [Concomitant]
     Active Substance: SULODEXIDE
     Indication: PHLEBITIS
     Dosage: 60 MG, 1X/DAY
     Route: 030
     Dates: start: 20150303, end: 20150308

REACTIONS (2)
  - Arthritis bacterial [Not Recovered/Not Resolved]
  - Myocardial infarction [Fatal]

NARRATIVE: CASE EVENT DATE: 20150516
